FAERS Safety Report 17521935 (Version 1)
Quarter: 2020Q1

REPORT INFORMATION
  Report Type: Spontaneous
  Country: US (occurrence: US)
  Receive Date: 20200310
  Receipt Date: 20200310
  Transmission Date: 20200409
  Serious: No
  Sender: FDA-Public Use
  Company Number: US-FARMAPROD-201911-1765

PATIENT
  Sex: Female

DRUGS (2)
  1. XIIDRA [Suspect]
     Active Substance: LIFITEGRAST
  2. OXERVATE [Suspect]
     Active Substance: CENEGERMIN-BKBJ
     Indication: NEUROTROPHIC KERATOPATHY
     Route: 047
     Dates: start: 20191102

REACTIONS (8)
  - Eye pain [Unknown]
  - Nasal discomfort [Unknown]
  - Lacrimation increased [Unknown]
  - Product dose omission [Unknown]
  - Periorbital pain [Unknown]
  - Eye swelling [Unknown]
  - Eye irritation [Unknown]
  - Ocular hyperaemia [Unknown]
